FAERS Safety Report 14997914 (Version 1)
Quarter: 2018Q2

REPORT INFORMATION
  Report Type: Spontaneous
  Country: US (occurrence: US)
  Receive Date: 20180611
  Receipt Date: 20180611
  Transmission Date: 20180711
  Serious: No
  Sender: FDA-Public Use
  Company Number: US-FOUNDATIONCONSUMERHC-2018-US-007485

PATIENT
  Age: 25 Year
  Sex: Female
  Weight: 58.97 kg

DRUGS (3)
  1. BIOTIN UNSPECIFIED [Concomitant]
     Dosage: UNK
     Route: 048
  2. PLAN B ONE-STEP [Suspect]
     Active Substance: LEVONORGESTREL
     Indication: POST COITAL CONTRACEPTION
     Dosage: 1.5MG
     Route: 048
     Dates: start: 20180403, end: 20180403
  3. FISH OIL UNSPECIFIED [Concomitant]
     Dosage: UNK
     Route: 048

REACTIONS (5)
  - Dysmenorrhoea [Not Recovered/Not Resolved]
  - Breast tenderness [Not Recovered/Not Resolved]
  - Nausea [Not Recovered/Not Resolved]
  - Menstruation delayed [Not Recovered/Not Resolved]
  - Vaginal haemorrhage [Recovered/Resolved]

NARRATIVE: CASE EVENT DATE: 20180410
